FAERS Safety Report 18002275 (Version 3)
Quarter: 2020Q3

REPORT INFORMATION
  Report Type: Spontaneous
  Country: BE (occurrence: BE)
  Receive Date: 20200710
  Receipt Date: 20200902
  Transmission Date: 20201103
  Serious: Yes (Hospitalization, Other)
  Sender: FDA-Public Use
  Company Number: BE-AUROBINDO-AUR-APL-2020-033696

PATIENT
  Age: 63 Year
  Sex: Male
  Weight: 75 kg

DRUGS (17)
  1. AVELUMAB [Suspect]
     Active Substance: AVELUMAB
     Indication: COLORECTAL CANCER METASTATIC
     Dosage: 729 MILLIGRAM
     Route: 042
     Dates: start: 20200204
  2. INNOHEP [Concomitant]
     Active Substance: TINZAPARIN SODIUM
     Indication: PRODUCT USED FOR UNKNOWN INDICATION
     Dosage: UNK
     Route: 065
     Dates: start: 20190930
  3. AMLOR [Concomitant]
     Active Substance: AMLODIPINE BESYLATE
     Indication: PRODUCT USED FOR UNKNOWN INDICATION
     Dosage: UNK
     Route: 065
     Dates: start: 201807
  4. NOVORAPID [Concomitant]
     Active Substance: INSULIN ASPART
     Indication: PRODUCT USED FOR UNKNOWN INDICATION
     Dosage: UNK
     Route: 065
     Dates: start: 20180929
  5. IRINOTECAN CONCENTRATE FOR SOLUTION FOR INFUSION [Suspect]
     Active Substance: IRINOTECAN
     Dosage: 266 MILLIGRAM
     Route: 042
     Dates: start: 20200526, end: 20200526
  6. AVELUMAB [Suspect]
     Active Substance: AVELUMAB
     Dosage: 729 MILLIGRAM, (10 MG/KG)
     Route: 042
     Dates: start: 20200616
  7. CETUXIMAB. [Suspect]
     Active Substance: CETUXIMAB
     Indication: COLORECTAL CANCER METASTATIC
     Dosage: 717 MILLIGRAM
     Route: 042
     Dates: start: 20200122
  8. CETUXIMAB. [Suspect]
     Active Substance: CETUXIMAB
     Dosage: 888 MILLIGRAM
     Route: 042
     Dates: start: 20200526, end: 20200526
  9. LOSFERRON [Concomitant]
     Indication: IRON DEFICIENCY ANAEMIA
     Dosage: 695 MILLIGRAM, ONCE A DAY
     Route: 048
  10. IRINOTECAN CONCENTRATE FOR SOLUTION FOR INFUSION [Suspect]
     Active Substance: IRINOTECAN
     Indication: COLORECTAL CANCER METASTATIC
     Dosage: 269 MILLIGRAM
     Route: 042
     Dates: start: 20200122
  11. IRINOTECAN CONCENTRATE FOR SOLUTION FOR INFUSION [Suspect]
     Active Substance: IRINOTECAN
     Dosage: UNK
     Route: 042
     Dates: start: 20200616
  12. AVELUMAB [Suspect]
     Active Substance: AVELUMAB
     Dosage: 720 MILLIGRAM
     Route: 042
     Dates: start: 20200526, end: 20200526
  13. AMOXICLAV [Concomitant]
     Active Substance: AMOXICILLIN\CLAVULANATE POTASSIUM
     Indication: SEPSIS
     Dosage: 1 GRAM
     Route: 042
     Dates: start: 20200608
  14. SIMVASTATIN. [Concomitant]
     Active Substance: SIMVASTATIN
     Indication: PRODUCT USED FOR UNKNOWN INDICATION
     Dosage: UNK
     Route: 065
  15. CETUXIMAB. [Suspect]
     Active Substance: CETUXIMAB
     Dosage: UNK
     Route: 042
     Dates: start: 20200616
  16. PANTOPRAZOLE [Suspect]
     Active Substance: PANTOPRAZOLE
     Indication: PRODUCT USED FOR UNKNOWN INDICATION
     Dosage: UNK
     Route: 065
     Dates: start: 201904
  17. TOUJEO [Concomitant]
     Active Substance: INSULIN GLARGINE
     Indication: PRODUCT USED FOR UNKNOWN INDICATION
     Dosage: UNK
     Route: 065
     Dates: start: 201811

REACTIONS (1)
  - Sepsis [Recovered/Resolved]

NARRATIVE: CASE EVENT DATE: 20200607
